FAERS Safety Report 10011717 (Version 1)
Quarter: 2014Q1

REPORT INFORMATION
  Report Type: Spontaneous
  Country: US (occurrence: None)
  Receive Date: 20140312
  Receipt Date: 20140312
  Transmission Date: 20141002
  Serious: Yes (Death)
  Sender: FDA-Public Use
  Company Number: UTC-045419

PATIENT
  Age: 75 Year
  Sex: Female
  Weight: 65 kg

DRUGS (4)
  1. REMODULIN (10 MILLIGRAM/MILLILITERS, INJECTION FOR INFUSION) (TREPROSTINIL SODIUM) [Suspect]
     Indication: COR PULMONALE CHRONIC
     Dosage: (0.049 UG/KG, 1 IN 1 MIN)
     Route: 058
     Dates: start: 20120826
  2. LETAIRIS (AMBRISENTAN) (TABLETS) [Concomitant]
  3. WARFARIN (WARFARIN) [Concomitant]
  4. ADCIRCA (TADALAFIL) [Concomitant]

REACTIONS (1)
  - Death [None]
